FAERS Safety Report 14646248 (Version 3)
Quarter: 2018Q2

REPORT INFORMATION
  Report Type: Report from Study
  Country: US (occurrence: US)
  Receive Date: 20180316
  Receipt Date: 20180613
  Transmission Date: 20180711
  Serious: Yes (Other)
  Sender: FDA-Public Use
  Company Number: US-ROCHE-2085740

PATIENT
  Age: 39 Year
  Sex: Female
  Weight: 69.3 kg

DRUGS (10)
  1. PLEGRIDY [Concomitant]
     Active Substance: PEGINTERFERON BETA-1A
     Dosage: 125 MCG/0.5 ML
     Route: 058
     Dates: start: 201509
  2. HERCEPTIN [Concomitant]
     Active Substance: TRASTUZUMAB
     Route: 065
  3. ZINBRYTA [Concomitant]
     Active Substance: DACLIZUMAB
  4. CARBOPLATIN. [Concomitant]
     Active Substance: CARBOPLATIN
  5. PERTUZUMAB. [Concomitant]
     Active Substance: PERTUZUMAB
     Route: 065
  6. PROZAC [Concomitant]
     Active Substance: FLUOXETINE HYDROCHLORIDE
  7. TAXOTERE [Concomitant]
     Active Substance: DOCETAXEL
  8. OCREVUS [Suspect]
     Active Substance: OCRELIZUMAB
     Indication: MULTIPLE SCLEROSIS
     Dosage: ONGOING; UNKNOWN
     Route: 042
     Dates: start: 20171130, end: 20171215
  9. FISH OIL [Concomitant]
     Active Substance: FISH OIL
  10. CLARITIN [Concomitant]
     Active Substance: LORATADINE

REACTIONS (1)
  - Breast cancer [Unknown]

NARRATIVE: CASE EVENT DATE: 20180105
